FAERS Safety Report 17545341 (Version 1)
Quarter: 2020Q1

REPORT INFORMATION
  Report Type: Spontaneous
  Country: PR (occurrence: PR)
  Receive Date: 20200316
  Receipt Date: 20200316
  Transmission Date: 20200409
  Serious: Yes (Other)
  Sender: FDA-Public Use
  Company Number: PR-PFIZER INC-2019481091

PATIENT
  Age: 67 Year
  Sex: Female

DRUGS (1)
  1. XELJANZ XR [Suspect]
     Active Substance: TOFACITINIB CITRATE
     Indication: RHEUMATOID ARTHRITIS
     Dosage: 11 MG, DAILY
     Dates: start: 20190927

REACTIONS (5)
  - Productive cough [Unknown]
  - Malaise [Unknown]
  - Respiratory distress [Unknown]
  - Nasopharyngitis [Unknown]
  - Flatulence [Unknown]

NARRATIVE: CASE EVENT DATE: 2020
